FAERS Safety Report 23943821 (Version 1)
Quarter: 2024Q2

REPORT INFORMATION
  Report Type: Report from Study
  Country: CR (occurrence: None)
  Receive Date: 20240606
  Receipt Date: 20240606
  Transmission Date: 20240716
  Serious: Yes (Hospitalization, Other)
  Sender: FDA-Public Use
  Company Number: 2024A126697

PATIENT
  Sex: Female

DRUGS (1)
  1. NEXIUM [Suspect]
     Active Substance: ESOMEPRAZOLE MAGNESIUM
     Indication: Diabetes mellitus
     Route: 048

REACTIONS (4)
  - Pancreatitis [Unknown]
  - Amnesia [Unknown]
  - Metaplasia [Unknown]
  - Off label use [Unknown]
